FAERS Safety Report 17509187 (Version 1)
Quarter: 2020Q1

REPORT INFORMATION
  Report Type: Spontaneous
  Country: US (occurrence: US)
  Receive Date: 20200306
  Receipt Date: 20200306
  Transmission Date: 20200409
  Serious: Yes (Other)
  Sender: FDA-Public Use
  Company Number: None

PATIENT
  Age: 71 Year
  Sex: Male

DRUGS (10)
  1. VITAMIN B COMPLEX [Concomitant]
     Active Substance: CYANOCOBALAMIN\DEXPANTHENOL\NIACINAMIDE\PYRIDOXINE HYDROCHLORIDE\RIBOFLAVIN 5^-PHOSPHATE SODIUM\THIAMINE HYDROCHLORIDE\VITAMIN B COMPLEX
  2. EZETIMBLE 10MG [Concomitant]
  3. ROSUVASTATIN CALCIUM 10MG [Concomitant]
     Active Substance: ROSUVASTATIN CALCIUM
  4. DILITAZEM 360MG [Concomitant]
  5. GLUCOSAMINE [Concomitant]
     Active Substance: GLUCOSAMINE
  6. ASPIRIN 81 MG [Concomitant]
     Active Substance: ASPIRIN
  7. BEOVU [Suspect]
     Active Substance: BROLUCIZUMAB-DBLL
     Indication: NEOVASCULAR AGE-RELATED MACULAR DEGENERATION
     Dosage: ?          OTHER FREQUENCY:MONTHLY;OTHER ROUTE:INTRAVITREAL?
     Dates: start: 20200123, end: 20200123
  8. ULORIC [Concomitant]
     Active Substance: FEBUXOSTAT
  9. TOPROL XL 500MG [Concomitant]
  10. MULTI VITAMIN [Concomitant]
     Active Substance: VITAMINS

REACTIONS (1)
  - Retinal artery occlusion [None]

NARRATIVE: CASE EVENT DATE: 20200212
